FAERS Safety Report 14689886 (Version 1)
Quarter: 2018Q1

REPORT INFORMATION
  Report Type: Spontaneous
  Country: US (occurrence: US)
  Receive Date: 20180328
  Receipt Date: 20180328
  Transmission Date: 20180509
  Serious: No
  Sender: FDA-Public Use
  Company Number: US-SMITH AND NEPHEW, INC-2017SMT00381

PATIENT
  Weight: 77.98 kg

DRUGS (1)
  1. COLLAGENASE SANTYL [Suspect]
     Active Substance: COLLAGENASE CLOSTRIDIUM HISTOLYTICUM
     Indication: DIABETIC ULCER
     Dosage: 250 U/G, 1X/DAY
     Route: 061
     Dates: start: 201704, end: 201705

REACTIONS (1)
  - Wound complication [Recovering/Resolving]

NARRATIVE: CASE EVENT DATE: 2017
